FAERS Safety Report 9054762 (Version 1)
Quarter: 2013Q1

REPORT INFORMATION
  Report Type: Spontaneous
  Country: NL (occurrence: NL)
  Receive Date: 20130208
  Receipt Date: 20130208
  Transmission Date: 20140127
  Serious: Yes (Life-Threatening)
  Sender: FDA-Public Use
  Company Number: NL-BAYER-2013-011921

PATIENT
  Age: 69 Year
  Sex: Female

DRUGS (2)
  1. NAPROXEN SODIUM ({= 220 MG) [Suspect]
     Indication: BACK PAIN
     Dosage: UNK
     Dates: start: 20111224, end: 20111224
  2. DICLOFENAC [Suspect]
     Indication: BACK PAIN
     Dosage: 50 MG, UNK
     Dates: start: 20111224

REACTIONS (1)
  - Anaphylactic reaction [Recovered/Resolved]
